FAERS Safety Report 24634444 (Version 1)
Quarter: 2024Q4

REPORT INFORMATION
  Report Type: Spontaneous
  Country: US (occurrence: US)
  Receive Date: 20241119
  Receipt Date: 20241119
  Transmission Date: 20250115
  Serious: Yes (Other)
  Sender: Kenvue
  Company Number: US-KENVUE-20241103160

PATIENT
  Sex: Female

DRUGS (2)
  1. TYLENOL 8 HR ARTHRITIS PAIN [Suspect]
     Active Substance: ACETAMINOPHEN
     Indication: Gastrooesophageal reflux disease
     Dosage: TAKING IT EVERYDAY
     Route: 048
  2. TYLENOL PM [Suspect]
     Active Substance: ACETAMINOPHEN\DIPHENHYDRAMINE
     Indication: Gastrooesophageal reflux disease
     Dosage: TAKING IT BEFORE BEDTIME
     Route: 065

REACTIONS (4)
  - Foreign body in throat [Recovering/Resolving]
  - Product size issue [Unknown]
  - Product administration error [Unknown]
  - Product use in unapproved indication [Unknown]
